FAERS Safety Report 9493405 (Version 1)
Quarter: 2013Q3

REPORT INFORMATION
  Report Type: Report from Study
  Country: PL (occurrence: PL)
  Receive Date: 20130902
  Receipt Date: 20130902
  Transmission Date: 20140515
  Serious: Yes (Other)
  Sender: FDA-Public Use
  Company Number: PHHY2013PL093990

PATIENT
  Sex: Male

DRUGS (5)
  1. AMN107 [Suspect]
     Dosage: UNK UKN, UNK
  2. AMN107 [Suspect]
     Dosage: 400 MG, DAILY
     Dates: start: 20110112, end: 20110210
  3. ACARD [Concomitant]
     Dosage: 75 MG, UNK
  4. TRITACE [Concomitant]
     Dosage: 10 MG, UNK
  5. TORVACARD [Concomitant]
     Dosage: 40 MG, UNK

REACTIONS (4)
  - Erythema [Recovering/Resolving]
  - Pruritus [Recovering/Resolving]
  - Pyrexia [Recovering/Resolving]
  - Drug intolerance [Unknown]
